FAERS Safety Report 10373898 (Version 1)
Quarter: 2014Q3

REPORT INFORMATION
  Report Type: Report from Study
  Country: BR (occurrence: BR)
  Receive Date: 20140809
  Receipt Date: 20140809
  Transmission Date: 20150326
  Serious: Yes (Death, Hospitalization, Other)
  Sender: FDA-Public Use
  Company Number: PHHY2014BR097754

PATIENT
  Age: 79 Year
  Sex: Male
  Weight: 80 kg

DRUGS (6)
  1. PROLOPA [Concomitant]
     Active Substance: BENSERAZIDE\LEVODOPA
     Indication: TREMOR
     Dosage: 5 DF, DAILY
  2. SIFROL [Concomitant]
     Active Substance: PRAMIPEXOLE
     Indication: PARKINSON^S DISEASE
     Dosage: 4 DF, DAILY
  3. EXELON PATCH [Suspect]
     Active Substance: RIVASTIGMINE
     Indication: PARKINSON^S DISEASE
     Dosage: 9 MG (5 CM2), EACH 24 HS
     Route: 062
     Dates: start: 20140507, end: 20140703
  4. CEBRILIN [Concomitant]
     Indication: ANXIETY
     Dosage: 1 DF, DAILY
  5. DIOVAN [Suspect]
     Active Substance: VALSARTAN
     Indication: HYPERTENSION
     Dosage: 1 DF, DAILY
  6. DIOVAN [Suspect]
     Active Substance: VALSARTAN
     Indication: ARRHYTHMIA

REACTIONS (11)
  - Renal failure [Unknown]
  - Anxiety [Unknown]
  - Pyrexia [Unknown]
  - Death [Fatal]
  - Pneumonia [Unknown]
  - Dyspnoea [Unknown]
  - Fall [Unknown]
  - Diarrhoea [Unknown]
  - Hypertension [Unknown]
  - Myoclonus [Unknown]
  - Blood sodium decreased [Unknown]

NARRATIVE: CASE EVENT DATE: 20140628
